FAERS Safety Report 9511317 (Version 1)
Quarter: 2013Q1

REPORT INFORMATION
  Report Type: Spontaneous
  Country: US (occurrence: None)
  Receive Date: 20130305
  Receipt Date: 20130305
  Transmission Date: 20140127
  Serious: Yes (Hospitalization, Other)
  Sender: FDA-Public Use
  Company Number: 163-21880-12103289

PATIENT
  Age: 79 Year
  Sex: Female

DRUGS (1)
  1. REVLIMID [Suspect]
     Indication: PLASMA CELL MYELOMA
     Dosage: 15 MG, 1 IN 1 D, PO
     Route: 048
     Dates: start: 200708

REACTIONS (7)
  - Dehydration [None]
  - Diarrhoea [None]
  - Vomiting [None]
  - Neuropathy peripheral [None]
  - Pain [None]
  - Pneumonia [None]
  - Plasma cell myeloma [None]
